FAERS Safety Report 6510165-3 (Version None)
Quarter: 2009Q4

REPORT INFORMATION
  Report Type: 
  Country: None (occurrence: None)
  Receive Date: 20091222
  Receipt Date: 20091209
  Transmission Date: 20100525
  Serious: Yes (Other)
  Sender: FDA-Public Use
  Company Number: US-CELGENEUS-163-20785-09121025

PATIENT
  Sex: Female

DRUGS (4)
  1. THALOMID [Suspect]
     Indication: MULTIPLE MYELOMA
     Route: 048
     Dates: start: 20090301
  2. THALOMID [Suspect]
     Route: 048
     Dates: start: 20070801
  3. THALOMID [Suspect]
     Route: 048
     Dates: start: 20080401
  4. THALOMID [Suspect]
     Route: 048
     Dates: start: 20080801

REACTIONS (5)
  - ASTHMA [None]
  - DYSPNOEA [None]
  - HYPOAESTHESIA [None]
  - MUSCLE SPASMS [None]
  - PARKINSON'S DISEASE [None]
